FAERS Safety Report 9520830 (Version 2)
Quarter: 2013Q3

REPORT INFORMATION
  Report Type: Spontaneous
  Country: FR (occurrence: None)
  Receive Date: 20130911
  Receipt Date: 20130918
  Transmission Date: 20140515
  Serious: Yes (Death)
  Sender: FDA-Public Use
  Company Number: 2013FR002430

PATIENT
  Sex: Female

DRUGS (1)
  1. PONATINIB [Suspect]
     Indication: PRODUCT USED FOR UNKNOWN INDICATION
     Route: 048

REACTIONS (3)
  - Sepsis [None]
  - Leukaemia recurrent [None]
  - Disease progression [None]
